FAERS Safety Report 22294088 (Version 1)
Quarter: 2023Q2

REPORT INFORMATION
  Report Type: Spontaneous
  Country: CA (occurrence: CA)
  Receive Date: 20230508
  Receipt Date: 20230508
  Transmission Date: 20230722
  Serious: Yes (Life-Threatening, Hospitalization, Disabling, Other)
  Sender: FDA-Public Use
  Company Number: CA-TEVA-2023-CA-2882882

PATIENT
  Age: 71 Year
  Sex: Female
  Weight: 60 kg

DRUGS (1)
  1. PROPRANOLOL [Suspect]
     Active Substance: PROPRANOLOL HYDROCHLORIDE
     Indication: Portal hypertension
     Dosage: 160 MILLIGRAM DAILY;
     Route: 048

REACTIONS (9)
  - Brain injury [Recovered/Resolved with Sequelae]
  - Confusional state [Recovered/Resolved with Sequelae]
  - Fistula [Recovered/Resolved with Sequelae]
  - Gastrointestinal necrosis [Recovered/Resolved with Sequelae]
  - Illness [Recovered/Resolved with Sequelae]
  - Intestinal infarction [Recovered/Resolved with Sequelae]
  - Septic shock [Recovered/Resolved with Sequelae]
  - Heart rate decreased [Recovered/Resolved with Sequelae]
  - Incorrect dose administered [Recovered/Resolved with Sequelae]
